FAERS Safety Report 7296278-X (Version None)
Quarter: 2011Q1

REPORT INFORMATION
  Report Type: 
  Country: None (occurrence: None)
  Receive Date: 20110211
  Receipt Date: 20110211
  Transmission Date: 20110831
  Serious: No
  Sender: FDA-Public Use
  Company Number: None

PATIENT
  Age: 64 Year
  Sex: Female
  Weight: 54.4316 kg

DRUGS (1)
  1. ETODOLAC [Suspect]
     Indication: PLANTAR FASCIITIS
     Dosage: 400 MG TABLET TWICE A DAY BY MOUTH
     Route: 048
     Dates: start: 20110125, end: 20110131

REACTIONS (4)
  - PRURITUS [None]
  - RASH [None]
  - ERYTHEMA [None]
  - INFLAMMATION [None]
